FAERS Safety Report 4379989-5 (Version None)
Quarter: 2004Q2

REPORT INFORMATION
  Report Type: 
  Country: None (occurrence: None)
  Receive Date: 20040614
  Receipt Date: 20040528
  Transmission Date: 20050107
  Serious: Yes (Hospitalization)
  Sender: FDA-Public Use
  Company Number: 2004IM000571

PATIENT
  Age: 57 Year
  Sex: Male

DRUGS (1)
  1. ADVAFERON (A643_INTERFERON ALFACON-1) [Suspect]
     Indication: HEPATITIS C
     Dosage: 18 MU; TIW; SUBCUTANEOUS
     Route: 058
     Dates: start: 20030820, end: 20040402

REACTIONS (3)
  - DIABETES MELLITUS [None]
  - PROTEINURIA [None]
  - WEIGHT DECREASED [None]
